FAERS Safety Report 4975128-8 (Version None)
Quarter: 2006Q2

REPORT INFORMATION
  Report Type: 
  Country: None (occurrence: None)
  Receive Date: 20060411
  Receipt Date: 20060328
  Transmission Date: 20061013
  Serious: Yes (Hospitalization)
  Sender: FDA-Public Use
  Company Number: 223443

PATIENT
  Age: 67 Year
  Sex: Female
  Weight: 67 kg

DRUGS (7)
  1. MABTHERA [Suspect]
     Indication: CHRONIC LYMPHOCYTIC LEUKAEMIA
     Dosage: 675 MG, Q28D, INTRAVENOUS
     Route: 042
     Dates: start: 20060320, end: 20060321
  2. CYCLOPHOSPHAMIDE [Suspect]
     Indication: CHRONIC LYMPHOCYTIC LEUKAEMIA
     Dosage: 450 MG, 3/MONTH, INTRAVENOUS
     Route: 042
     Dates: start: 20060321, end: 20060322
  3. FLUDARABINE [Suspect]
     Indication: CHRONIC LYMPHOCYTIC LEUKAEMIA
     Dosage: 65 MG, 3/MONTH, INTRAVENOUS
     Route: 042
     Dates: start: 20060321, end: 20060321
  4. ALLOPURINOL [Concomitant]
  5. ITRACONAZOLE [Concomitant]
  6. FOLIC ACID [Concomitant]
  7. FOLIC ACID [Concomitant]

REACTIONS (2)
  - ELECTROCARDIOGRAM T WAVE INVERSION [None]
  - SINUS BRADYCARDIA [None]
